FAERS Safety Report 6240476-0 (Version None)
Quarter: 2009Q2

REPORT INFORMATION
  Report Type: 
  Country: None (occurrence: None)
  Receive Date: 20090623
  Receipt Date: 20090313
  Transmission Date: 20091009
  Serious: No
  Sender: FDA-Public Use
  Company Number: US-ASTRAZENECA-2009UW06588

PATIENT
  Age: 86 Year
  Sex: Female
  Weight: 61.7 kg

DRUGS (6)
  1. PULMICORT RESPULES [Suspect]
     Indication: EMPHYSEMA
     Route: 055
     Dates: start: 20090113
  2. ALBUTEROL [Concomitant]
     Indication: EMPHYSEMA
  3. IPRATROPIUM BROMIDE [Concomitant]
     Indication: EMPHYSEMA
  4. CORGARD [Concomitant]
  5. MULTI-VITAMINS [Concomitant]
  6. LASIX [Concomitant]

REACTIONS (3)
  - BURNING SENSATION [None]
  - GLOSSODYNIA [None]
  - WRONG TECHNIQUE IN DRUG USAGE PROCESS [None]
